FAERS Safety Report 24622140 (Version 1)
Quarter: 2024Q4

REPORT INFORMATION
  Report Type: Spontaneous
  Country: CN (occurrence: CN)
  Receive Date: 20241114
  Receipt Date: 20241114
  Transmission Date: 20250115
  Serious: Yes (Life-Threatening)
  Sender: ABBVIE
  Company Number: CN-ABBVIE-6005063

PATIENT
  Age: 52 Year
  Sex: Male
  Weight: 63 kg

DRUGS (4)
  1. VENETOCLAX [Suspect]
     Active Substance: VENETOCLAX
     Indication: Acute monocytic leukaemia
     Dosage: 100 MILLIGRAM
     Route: 048
     Dates: start: 20241022, end: 20241022
  2. VENETOCLAX [Suspect]
     Active Substance: VENETOCLAX
     Indication: Acute monocytic leukaemia
     Dosage: 200 MILLIGRAM
     Route: 048
     Dates: start: 20241023, end: 20241023
  3. VENETOCLAX [Suspect]
     Active Substance: VENETOCLAX
     Indication: Acute monocytic leukaemia
     Dosage: 400 MILLIGRAM
     Route: 048
     Dates: start: 20241024, end: 20241024
  4. DECITABINE [Suspect]
     Active Substance: DECITABINE
     Indication: Acute monocytic leukaemia
     Dosage: 50 MILLIGRAM
     Route: 065
     Dates: start: 20241022, end: 20241022

REACTIONS (1)
  - Myelosuppression [Not Recovered/Not Resolved]

NARRATIVE: CASE EVENT DATE: 20241024
